FAERS Safety Report 11110026 (Version 1)
Quarter: 2015Q2

REPORT INFORMATION
  Report Type: Spontaneous
  Country: US (occurrence: US)
  Receive Date: 20150513
  Receipt Date: 20150513
  Transmission Date: 20150821
  Serious: No
  Sender: FDA-Public Use
  Company Number: US-BAYER-2015-190557

PATIENT
  Age: 76 Year
  Sex: Male
  Weight: 65.76 kg

DRUGS (2)
  1. MIRALAX [Suspect]
     Active Substance: POLYETHYLENE GLYCOL 3350
     Indication: CONSTIPATION
     Dosage: 1 UNIT, BID
     Route: 048
     Dates: start: 20150424
  2. MIRALAX [Suspect]
     Active Substance: POLYETHYLENE GLYCOL 3350
     Indication: CONSTIPATION
     Dosage: UNK
     Route: 048
     Dates: start: 2014, end: 2014

REACTIONS (3)
  - Off label use [None]
  - Drug ineffective [None]
  - Drug ineffective [None]

NARRATIVE: CASE EVENT DATE: 2014
